FAERS Safety Report 23787722 (Version 1)
Quarter: 2024Q2

REPORT INFORMATION
  Report Type: Spontaneous
  Country: CN (occurrence: CN)
  Receive Date: 20240426
  Receipt Date: 20240426
  Transmission Date: 20240716
  Serious: Yes (Hospitalization, Other)
  Sender: FDA-Public Use
  Company Number: CN-SANOFI-02021190

PATIENT
  Age: 86 Year
  Sex: Female

DRUGS (2)
  1. DUPIXENT [Suspect]
     Active Substance: DUPILUMAB
     Dosage: 600 MG, 1X
     Dates: start: 20240203, end: 20240203
  2. DUPIXENT [Suspect]
     Active Substance: DUPILUMAB
     Dosage: 2 DF, 1X
     Dates: start: 20240329, end: 20240329

REACTIONS (14)
  - Loss of consciousness [Recovering/Resolving]
  - Seizure [Recovering/Resolving]
  - Respiratory failure [Recovering/Resolving]
  - Pneumonia aspiration [Recovering/Resolving]
  - Pneumonia fungal [Recovering/Resolving]
  - Pulmonary tuberculosis [Recovering/Resolving]
  - Sputum discoloured [Recovering/Resolving]
  - Pyrexia [Recovered/Resolved]
  - Vomiting [Recovering/Resolving]
  - Hypertension [Recovering/Resolving]
  - Eosinophil count decreased [Unknown]
  - Chills [Unknown]
  - Decreased immune responsiveness [Unknown]
  - Pruritus [Recovering/Resolving]

NARRATIVE: CASE EVENT DATE: 20240101
